FAERS Safety Report 20610688 (Version 1)
Quarter: 2022Q1

REPORT INFORMATION
  Report Type: Spontaneous
  Country: JP (occurrence: JP)
  Receive Date: 20220318
  Receipt Date: 20220318
  Transmission Date: 20220423
  Serious: Yes (Other)
  Sender: FDA-Public Use
  Company Number: JP-ELI_LILLY_AND_COMPANY-JP202110001283

PATIENT
  Age: 60 Year
  Sex: Female
  Weight: 85 kg

DRUGS (13)
  1. VERZENIO [Suspect]
     Active Substance: ABEMACICLIB
     Indication: Breast cancer recurrent
     Dosage: 150 MG, BID
     Route: 048
     Dates: start: 20210301, end: 20210314
  2. TAMOXIFEN [Concomitant]
     Active Substance: TAMOXIFEN
     Indication: Breast cancer recurrent
     Dosage: UNK
     Dates: start: 20210205
  3. CANAGLIFLOZIN\TENELIGLIPTIN [Concomitant]
     Active Substance: CANAGLIFLOZIN\TENELIGLIPTIN
     Indication: Type 2 diabetes mellitus
  4. RABEPRAZOLE [Concomitant]
     Active Substance: RABEPRAZOLE
     Dosage: UNK
     Dates: start: 201604
  5. CARVEDILOL [Concomitant]
     Active Substance: CARVEDILOL
  6. AZOSEMIDE [Concomitant]
     Active Substance: AZOSEMIDE
  7. ENALAPRIL MALEATE [Concomitant]
     Active Substance: ENALAPRIL MALEATE
     Dosage: UNK
     Dates: start: 201504
  8. ROSUVASTATIN [Concomitant]
     Active Substance: ROSUVASTATIN
  9. FEBUXOSTAT [Concomitant]
     Active Substance: FEBUXOSTAT
  10. NIFEDIPINE CR SANWA [Concomitant]
  11. ELIQUIS [Concomitant]
     Active Substance: APIXABAN
  12. DIPYRIDAMOLE [Concomitant]
     Active Substance: DIPYRIDAMOLE
  13. NOVOLIN R [Concomitant]
     Active Substance: INSULIN HUMAN
     Indication: Type 2 diabetes mellitus

REACTIONS (1)
  - Renal impairment [Recovered/Resolved]

NARRATIVE: CASE EVENT DATE: 20210312
